FAERS Safety Report 9484741 (Version 2)
Quarter: 2013Q3

REPORT INFORMATION
  Report Type: Spontaneous
  Country: CA (occurrence: CA)
  Receive Date: 20130828
  Receipt Date: 20130828
  Transmission Date: 20140515
  Serious: Yes (Hospitalization, Other)
  Sender: FDA-Public Use
  Company Number: CA-AMGEN-KDL439092

PATIENT
  Age: 18 Year
  Sex: Male
  Weight: 53.3 kg

DRUGS (7)
  1. ENBREL [Suspect]
     Indication: PRODUCT USED FOR UNKNOWN INDICATION
     Dosage: 50 MG, QWK
     Route: 058
     Dates: start: 20100317
  2. ENBREL [Suspect]
     Indication: JUVENILE IDIOPATHIC ARTHRITIS
  3. SULFASALAZINE [Concomitant]
     Dosage: UNK UNK, UNK
     Dates: start: 200903
  4. METHOTREXATE [Concomitant]
     Dosage: UNK UNK, UNK
     Dates: start: 200809
  5. DICLOFENAC SODIUM/ MISOPROSTOL [Concomitant]
     Dosage: UNK UNK, UNK
     Dates: start: 200804
  6. FOLIC ACID [Concomitant]
  7. ONDANSETRON [Concomitant]

REACTIONS (6)
  - Dyspnoea [Unknown]
  - Loss of consciousness [Unknown]
  - Anxiety [Unknown]
  - Asthenia [Unknown]
  - Tachypnoea [Unknown]
  - Panic attack [Unknown]
